FAERS Safety Report 10019844 (Version 7)
Quarter: 2014Q2

REPORT INFORMATION
  Report Type: Spontaneous
  Country: US (occurrence: US)
  Receive Date: 20140318
  Receipt Date: 20140609
  Transmission Date: 20141212
  Serious: Yes (Other)
  Sender: FDA-Public Use
  Company Number: US-PFIZER INC-2014077296

PATIENT
  Age: 62 Year
  Sex: Female
  Weight: 90.7 kg

DRUGS (8)
  1. LYRICA [Suspect]
     Indication: FIBROMYALGIA
     Dosage: 225 MG, 2X/DAY
     Dates: start: 1999
  2. LYRICA [Suspect]
     Indication: PAIN
     Dosage: 225 MG, 2X/DAY
     Route: 048
     Dates: start: 20090903, end: 20140310
  3. LYRICA [Suspect]
     Indication: FIBROMYALGIA
     Dosage: UNK
  4. PREVACID [Concomitant]
     Indication: DYSPEPSIA
     Dosage: 20 MG, DAILY
  5. SYNTHROID [Concomitant]
     Indication: HYPOTHYROIDISM
     Dosage: 200 UG, DAILY
  6. VICODIN [Concomitant]
     Indication: BACK PAIN
     Dosage: 10-625 MG, QID PRN
     Dates: start: 201004
  7. VICODIN [Concomitant]
     Indication: FIBROMYALGIA
  8. WELLBUTRIN SR [Concomitant]
     Indication: DEPRESSION
     Dosage: 200 MG, 2X/DAY

REACTIONS (11)
  - Drug withdrawal syndrome [Recovered/Resolved]
  - Pain [Recovered/Resolved]
  - Feeling cold [Unknown]
  - Feeling hot [Unknown]
  - Emotional disorder [Unknown]
  - Crying [Unknown]
  - Irritable bowel syndrome [Unknown]
  - Hyperhidrosis [Unknown]
  - Sinusitis [Unknown]
  - Dizziness [Unknown]
  - Somnolence [Unknown]
